FAERS Safety Report 7594957-8 (Version None)
Quarter: 2011Q2

REPORT INFORMATION
  Report Type: 
  Country: None (occurrence: None)
  Receive Date: 20110616
  Receipt Date: 20110203
  Transmission Date: 20111010
  Serious: Yes (Hospitalization, Other)
  Sender: FDA-Public Use
  Company Number: 112472

PATIENT
  Age: 89 Year
  Sex: Male

DRUGS (1)
  1. DEFEROXAMINE MESYLATE [Suspect]
     Indication: HAEMOSIDEROSIS
     Dosage: 2 GM, IV, X1
     Route: 042
     Dates: start: 20110201

REACTIONS (1)
  - RESPIRATORY DISORDER [None]
